FAERS Safety Report 5921555-1 (Version None)
Quarter: 2008Q3

REPORT INFORMATION
  Report Type: 
  Country: None (occurrence: None)
  Receive Date: 20080909
  Receipt Date: 20080211
  Transmission Date: 20090109
  Serious: Yes (Other)
  Sender: FDA-Public Use
  Company Number: 163-20785-08010456

PATIENT
  Age: 78 Year
  Sex: Female

DRUGS (1)
  1. THALOMID [Suspect]
     Indication: MYELOFIBROSIS
     Dosage: 50 MG, 1 IN 1 D, ORAL
     Route: 048
     Dates: start: 20070501, end: 20071201

REACTIONS (5)
  - DISEASE PROGRESSION [None]
  - EXTRAMEDULLARY HAEMOPOIESIS [None]
  - HEPATIC ENCEPHALOPATHY [None]
  - HEPATIC FAILURE [None]
  - MYELOFIBROSIS [None]
